FAERS Safety Report 5528965-5 (Version None)
Quarter: 2007Q4

REPORT INFORMATION
  Report Type: 
  Country: None (occurrence: None)
  Receive Date: 20071109
  Receipt Date: 20070226
  Transmission Date: 20080405
  Serious: Yes (Hospitalization, Other)
  Sender: FDA-Public Use
  Company Number: PHEH2004US08194

PATIENT
  Age: 49 Year
  Sex: Female
  Weight: 69.4 kg

DRUGS (5)
  1. ESTRADERM [Suspect]
     Indication: HORMONE REPLACEMENT THERAPY
     Dosage: TRANSDERMAL
     Route: 062
     Dates: start: 19950301, end: 19950801
  2. MEDROXYPROGESTERONE ACETATE [Suspect]
     Indication: HORMONE REPLACEMENT THERAPY
     Dates: start: 19940701, end: 19950801
  3. PREMARIN [Suspect]
     Dates: start: 19931101, end: 19950201
  4. PREMPHASE (PREMARIN;CYCRIN 14/14) [Suspect]
     Dates: start: 19950101, end: 19960101
  5. PROVERA [Suspect]
     Dates: start: 19931101, end: 19940801

REACTIONS (24)
  - ABDOMINAL PAIN LOWER [None]
  - BLOOD CHOLESTEROL INCREASED [None]
  - BREAST CANCER [None]
  - BREAST CANCER IN SITU [None]
  - BREAST SWELLING [None]
  - EMOTIONAL DISTRESS [None]
  - HYPERTENSION [None]
  - LESION EXCISION [None]
  - LYMPHADENECTOMY [None]
  - MALAISE [None]
  - MENSTRUATION IRREGULAR [None]
  - MUSCLE SPASMS [None]
  - MUSCULOSKELETAL DISCOMFORT [None]
  - MUSCULOSKELETAL PAIN [None]
  - NASAL CONGESTION [None]
  - NECK PAIN [None]
  - NERVOUSNESS [None]
  - OSTEOARTHRITIS [None]
  - OSTEOPENIA [None]
  - OVARIAN CYST [None]
  - PAIN [None]
  - SCAR [None]
  - SCOLIOSIS [None]
  - SINUSITIS [None]
